FAERS Safety Report 12831624 (Version 2)
Quarter: 2016Q4

REPORT INFORMATION
  Report Type: Spontaneous
  Country: NZ (occurrence: NZ)
  Receive Date: 20161009
  Receipt Date: 20161011
  Transmission Date: 20170207
  Serious: Yes (Other)
  Sender: FDA-Public Use
  Company Number: NZ-SA-2016SA181160

PATIENT
  Age: 56 Year
  Sex: Male

DRUGS (3)
  1. CLEXANE [Suspect]
     Active Substance: ENOXAPARIN SODIUM
     Route: 065
     Dates: start: 201205
  2. CLEXANE [Suspect]
     Active Substance: ENOXAPARIN SODIUM
     Route: 065
  3. CLEXANE [Suspect]
     Active Substance: ENOXAPARIN SODIUM
     Route: 065
     Dates: start: 201204

REACTIONS (8)
  - Renal cell carcinoma [Unknown]
  - Pelvic venous thrombosis [Unknown]
  - Lymphoedema [Unknown]
  - Hypercalcaemia [Unknown]
  - Condition aggravated [Unknown]
  - Haemorrhage [Unknown]
  - Disease progression [Unknown]
  - Skin ulcer [Unknown]
